FAERS Safety Report 4679858-7 (Version None)
Quarter: 2005Q2

REPORT INFORMATION
  Report Type: 
  Country: None (occurrence: None)
  Receive Date: 20050602
  Receipt Date: 20050323
  Transmission Date: 20051028
  Serious: No
  Sender: FDA-Public Use
  Company Number: US-GLAXOSMITHKLINE-A0551064A

PATIENT
  Sex: Male

DRUGS (5)
  1. AUGMENTIN [Suspect]
     Indication: SINUSITIS
     Dosage: 1000MG TWICE PER DAY
     Route: 048
     Dates: start: 20050320
  2. FORTEO [Concomitant]
  3. VALTREX [Concomitant]
  4. ASPIRIN [Concomitant]
  5. CALCIUM SUPPLEMENTS [Concomitant]

REACTIONS (2)
  - DYSPHAGIA [None]
  - FOREIGN BODY TRAUMA [None]
